FAERS Safety Report 9302334 (Version 1)
Quarter: 2013Q2

REPORT INFORMATION
  Report Type: Spontaneous
  Country: US (occurrence: US)
  Receive Date: 20130522
  Receipt Date: 20130522
  Transmission Date: 20140414
  Serious: No
  Sender: FDA-Public Use
  Company Number: US-009507513-1305USA010454

PATIENT
  Sex: 0

DRUGS (1)
  1. DULERA [Suspect]
     Indication: ASTHMA
     Dosage: TWO PUFFS TWICE A DAY
     Route: 048
     Dates: start: 201105

REACTIONS (3)
  - Off label use [Unknown]
  - Product taste abnormal [Unknown]
  - No adverse event [Unknown]
